FAERS Safety Report 24039350 (Version 1)
Quarter: 2024Q3

REPORT INFORMATION
  Report Type: Spontaneous
  Country: US (occurrence: US)
  Receive Date: 20240702
  Receipt Date: 20240702
  Transmission Date: 20241016
  Serious: Yes (Hospitalization)
  Sender: CSL BEHRING
  Company Number: US-BEH-2024174732

PATIENT
  Sex: Female

DRUGS (25)
  1. HAEGARDA [Suspect]
     Active Substance: HUMAN C1-ESTERASE INHIBITOR
     Indication: Hereditary angioedema
     Dosage: 4365 IU, BIW
     Route: 058
     Dates: start: 20201229
  2. HAEGARDA [Suspect]
     Active Substance: HUMAN C1-ESTERASE INHIBITOR
     Indication: Prophylaxis
  3. HAEGARDA [Suspect]
     Active Substance: HUMAN C1-ESTERASE INHIBITOR
     Indication: Hereditary angioedema
     Dosage: 4365 IU, BIW
     Route: 058
     Dates: start: 20201229
  4. HAEGARDA [Suspect]
     Active Substance: HUMAN C1-ESTERASE INHIBITOR
     Indication: Prophylaxis
  5. ALBUTEROL SULFATE [Concomitant]
     Active Substance: ALBUTEROL SULFATE
  6. AMMONIUM LACTATE [Concomitant]
     Active Substance: AMMONIUM LACTATE
  7. CLOTRIMAZOLE [Concomitant]
     Active Substance: CLOTRIMAZOLE
  8. DILTIAZEM HYDROCHLORIDE [Concomitant]
     Active Substance: DILTIAZEM HYDROCHLORIDE
  9. ERYTHROMYCIN ABBOTT [Concomitant]
  10. FAMOTIDINE [Concomitant]
     Active Substance: FAMOTIDINE
  11. Fluocin [Concomitant]
  12. FLUTICASONE [Concomitant]
     Active Substance: FLUTICASONE
  13. ACETAMINOPHEN\HYDROCODONE [Concomitant]
     Active Substance: ACETAMINOPHEN\HYDROCODONE
  14. ICATIBANT [Concomitant]
     Active Substance: ICATIBANT ACETATE
  15. LIDOCAINE\PRILOCAINE [Concomitant]
     Active Substance: LIDOCAINE\PRILOCAINE
  16. LIDOCAINE [Concomitant]
     Active Substance: LIDOCAINE
  17. LIDOCAINE [Concomitant]
     Active Substance: LIDOCAINE
  18. MICATIN [Concomitant]
     Active Substance: MICONAZOLE NITRATE
  19. NICOTINE TRANSDERMAL SYSTEM [Concomitant]
     Active Substance: NICOTINE
  20. OMEPRAZOLE [Concomitant]
     Active Substance: OMEPRAZOLE
  21. SERTRALINE [Concomitant]
     Active Substance: SERTRALINE HYDROCHLORIDE
  22. STIOLTO RESPIMAT [Concomitant]
     Active Substance: OLODATEROL HYDROCHLORIDE\TIOTROPIUM BROMIDE MONOHYDRATE
  23. SUMATRIPTAN [Concomitant]
     Active Substance: SUMATRIPTAN
  24. TRAZODONE [Concomitant]
     Active Substance: TRAZODONE HYDROCHLORIDE
  25. VITAMIN C [Concomitant]
     Active Substance: ASCORBIC ACID

REACTIONS (1)
  - Hereditary angioedema [Unknown]
